FAERS Safety Report 4467946-X (Version None)
Quarter: 2004Q4

REPORT INFORMATION
  Report Type: 
  Country: None (occurrence: None)
  Receive Date: 20041004
  Receipt Date: 20040924
  Transmission Date: 20050328
  Serious: Yes (Hospitalization)
  Sender: FDA-Public Use
  Company Number: 200412698GDS

PATIENT
  Age: 71 Year
  Sex: Female

DRUGS (14)
  1. CIPROFLOXACIN [Suspect]
     Indication: URINARY TRACT INFECTION
     Dosage: 500 MG, BID, ORAL
     Route: 048
     Dates: start: 20040809, end: 20040812
  2. INDERAL [Suspect]
     Dosage: 20 MG, BID, ORAL
     Route: 048
     Dates: start: 20040804, end: 20040810
  3. SIRDALUD (TIZANIDINE HYDROCHLORIDE) [Suspect]
     Dosage: 4 MG, TOTAL DAILY, ORAL
     Route: 048
     Dates: end: 20040809
  4. SIRDALUD (TIZANIDINE HYDROCHLORIDE) [Suspect]
     Dosage: 4 MG, TOTAL DAILY, ORAL
     Route: 048
     Dates: start: 20040811
  5. ASPIRIN [Concomitant]
  6. COAPROVEL [Concomitant]
  7. SIMCORA [Concomitant]
  8. QUILINORM [Concomitant]
  9. SURMONTIL [Concomitant]
  10. SERESTA [Concomitant]
  11. NEURONTIN [Concomitant]
  12. CELEBREX [Concomitant]
  13. TRAMAL [Concomitant]
  14. PHLEBODRIL N [Concomitant]

REACTIONS (24)
  - BLOOD CREATININE INCREASED [None]
  - BRADYCARDIA [None]
  - DELIRIUM [None]
  - DRUG LEVEL INCREASED [None]
  - ELECTROCARDIOGRAM QRS COMPLEX PROLONGED [None]
  - ELECTROCARDIOGRAM QT PROLONGED [None]
  - FALL [None]
  - GENERAL PHYSICAL HEALTH DETERIORATION [None]
  - HAEMOGLOBIN DECREASED [None]
  - HEADACHE [None]
  - HYPOTENSION [None]
  - LOSS OF CONSCIOUSNESS [None]
  - MENTAL DISORDER DUE TO A GENERAL MEDICAL CONDITION [None]
  - MYOCLONUS [None]
  - PSYCHOMOTOR RETARDATION [None]
  - PULSE ABSENT [None]
  - SINUS ARREST [None]
  - SINUS BRADYCARDIA [None]
  - SOMNOLENCE [None]
  - THERAPEUTIC AGENT TOXICITY [None]
  - THIRST [None]
  - TRAUMATIC BRAIN INJURY [None]
  - TREMOR [None]
  - URINARY TRACT INFECTION [None]
